FAERS Safety Report 25900748 (Version 1)
Quarter: 2025Q4

REPORT INFORMATION
  Report Type: Spontaneous
  Country: IL (occurrence: IL)
  Receive Date: 20251009
  Receipt Date: 20251009
  Transmission Date: 20260117
  Serious: Yes (Other)
  Sender: AMGEN
  Company Number: IL-AMGEN-ISRSP2025196802

PATIENT
  Age: 71 Year
  Sex: Female

DRUGS (4)
  1. BEVACIZUMAB [Suspect]
     Active Substance: BEVACIZUMAB
     Indication: Triple negative breast cancer
     Dosage: 10 MILLIGRAM/KILOGRAM, Q2WK
     Route: 065
     Dates: end: 202406
  2. PACLITAXEL [Suspect]
     Active Substance: PACLITAXEL
     Indication: Triple negative breast cancer
     Dosage: 80 MILLIGRAM/SQ. METER, QWK
     Route: 065
  3. PACLITAXEL [Suspect]
     Active Substance: PACLITAXEL
     Dosage: UNK (DOSE REDUCED)
     Route: 065
  4. XELODA [Concomitant]
     Active Substance: CAPECITABINE
     Indication: Triple negative breast cancer
     Dosage: 1500 MILLIGRAM, BID (DAYS 1-14 OF A 21-DAY CYCLE)
     Dates: end: 202406

REACTIONS (3)
  - Triple negative breast cancer [Unknown]
  - Neuropathy peripheral [Unknown]
  - Toxicity to various agents [Unknown]
